FAERS Safety Report 8250215-X (Version None)
Quarter: 2012Q2

REPORT INFORMATION
  Report Type: 
  Country: None (occurrence: None)
  Receive Date: 20120402
  Receipt Date: 20120327
  Transmission Date: 20120825
  Serious: Yes (Hospitalization, Other)
  Sender: FDA-Public Use
  Company Number: US-JNJFOC-20120200423

PATIENT
  Sex: Female
  Weight: 73.7 kg

DRUGS (6)
  1. ASPIRIN [Suspect]
     Indication: CARDIOVASCULAR EVENT PROPHYLAXIS
     Route: 048
  2. MOBIC [Suspect]
     Indication: ILL-DEFINED DISORDER
     Route: 048
  3. VESICARE [Concomitant]
  4. NORVASC [Concomitant]
  5. XARELTO [Suspect]
     Indication: DEEP VEIN THROMBOSIS
     Route: 048
     Dates: start: 20111228, end: 20120109
  6. LOTRISONE [Concomitant]

REACTIONS (4)
  - GASTROINTESTINAL HAEMORRHAGE [None]
  - COLITIS [None]
  - GASTRITIS [None]
  - HAEMATURIA [None]
